FAERS Safety Report 5144660-9 (Version None)
Quarter: 2006Q4

REPORT INFORMATION
  Report Type: 
  Country: None (occurrence: None)
  Receive Date: 20061031
  Receipt Date: 20061019
  Transmission Date: 20070319
  Serious: Yes (Other)
  Sender: FDA-Public Use
  Company Number: 2006127583

PATIENT
  Sex: Male

DRUGS (1)
  1. LISTERINE [Suspect]
     Indication: ACCIDENTAL EXPOSURE
     Dosage: A BOTTLE ONCE, ORAL
     Route: 048
     Dates: start: 20061019, end: 20061019

REACTIONS (3)
  - ACCIDENTAL EXPOSURE [None]
  - FEELING DRUNK [None]
  - INCORRECT ROUTE OF DRUG ADMINISTRATION [None]
